FAERS Safety Report 7329071-X (Version None)
Quarter: 2011Q1

REPORT INFORMATION
  Report Type: 
  Country: None (occurrence: None)
  Receive Date: 20110225
  Receipt Date: 20110225
  Transmission Date: 20110831
  Serious: Yes (Life-Threatening, Hospitalization)
  Sender: FDA-Public Use
  Company Number: None

PATIENT
  Age: 66 Year
  Sex: Female
  Weight: 63.5036 kg

DRUGS (2)
  1. EVISTA [Suspect]
     Indication: OSTEOPENIA
     Dosage: 60 MG. ONE TABLET PER DAY PO
     Route: 048
     Dates: start: 20080228, end: 20090911
  2. EVISTA [Suspect]
     Indication: OSTEOPOROSIS
     Dosage: 60 MG. ONE TABLET PER DAY PO
     Route: 048
     Dates: start: 20080228, end: 20090911

REACTIONS (4)
  - PULMONARY EMBOLISM [None]
  - COUGH [None]
  - DYSPNOEA EXERTIONAL [None]
  - WHEEZING [None]
